FAERS Safety Report 6520647-6 (Version None)
Quarter: 2009Q4

REPORT INFORMATION
  Report Type: 
  Country: None (occurrence: None)
  Receive Date: 20091229
  Receipt Date: 20091222
  Transmission Date: 20100525
  Serious: Yes (Other)
  Sender: FDA-Public Use
  Company Number: US-BAYER-200917767BCC

PATIENT
  Sex: Female
  Weight: 136 kg

DRUGS (2)
  1. ALEVE [Suspect]
     Indication: PAIN
     Dosage: CONSUMER TAKES 1320 MG TO 2200 MG IN ONE DOSE EVERY DAY, SOMETIMES MORE THAN ONCE A DAY
     Route: 048
  2. PILL FOR DIABETES [Concomitant]
     Indication: DIABETES MELLITUS
     Route: 048

REACTIONS (6)
  - CONSTIPATION [None]
  - COUGH [None]
  - HAEMORRHOIDS [None]
  - PAIN [None]
  - RECTAL HAEMORRHAGE [None]
  - SWELLING [None]
